FAERS Safety Report 25111261 (Version 1)
Quarter: 2025Q1

REPORT INFORMATION
  Report Type: Spontaneous
  Country: US (occurrence: US)
  Receive Date: 20250324
  Receipt Date: 20250324
  Transmission Date: 20250409
  Serious: Yes (Hospitalization, Other)
  Sender: ZYDUS PHARM
  Company Number: US-CADILA HEALTHCARE LIMITED-US-ZYDUS-120894

PATIENT

DRUGS (4)
  1. ETOMIDATE [Suspect]
     Active Substance: ETOMIDATE
     Indication: Endotracheal intubation
     Route: 065
  2. FLUTICASONE FUROATE\VILANTEROL TRIFENATATE [Concomitant]
     Active Substance: FLUTICASONE FUROATE\VILANTEROL TRIFENATATE
     Indication: Asthma
     Route: 065
  3. ROCURONIUM [Concomitant]
     Active Substance: ROCURONIUM BROMIDE
     Indication: Endotracheal intubation
     Route: 065
  4. KETAMINE [Concomitant]
     Active Substance: KETAMINE
     Indication: Endotracheal intubation
     Route: 065

REACTIONS (1)
  - Adrenal insufficiency [Unknown]
